FAERS Safety Report 10986402 (Version 2)
Quarter: 2015Q2

REPORT INFORMATION
  Report Type: Spontaneous
  Country: US (occurrence: US)
  Receive Date: 20150404
  Receipt Date: 20150525
  Transmission Date: 20150821
  Serious: No
  Sender: FDA-Public Use
  Company Number: US-JNJFOC-20140202260

PATIENT
  Age: 6 Decade
  Sex: Female

DRUGS (2)
  1. IMODIUM MULTI-SYMPTOM RELIEF [Suspect]
     Active Substance: DIMETHICONE\LOPERAMIDE HYDROCHLORIDE
     Indication: DIARRHOEA
     Route: 048
  2. IMODIUM MULTI-SYMPTOM RELIEF [Suspect]
     Active Substance: DIMETHICONE\LOPERAMIDE HYDROCHLORIDE
     Route: 048

REACTIONS (7)
  - Retching [Recovered/Resolved]
  - Foreign body [Unknown]
  - Product coating issue [Unknown]
  - Product formulation issue [Unknown]
  - Dysphagia [Recovered/Resolved]
  - Wrong technique in drug usage process [Unknown]
  - Choking [Unknown]
